FAERS Safety Report 7934171-7 (Version None)
Quarter: 2011Q4

REPORT INFORMATION
  Report Type: 
  Country: None (occurrence: None)
  Receive Date: 20111118
  Receipt Date: 20111102
  Transmission Date: 20120403
  Serious: Yes (Life-Threatening)
  Sender: FDA-Public Use
  Company Number: 2011SP027064

PATIENT
  Age: 65 Year
  Sex: Male
  Weight: 72 kg

DRUGS (5)
  1. UNASYN [Concomitant]
  2. ULTIVA [Concomitant]
  3. PROPOFOL [Concomitant]
  4. ,YLOCAINE SOLUTION 4% (LIDOCAINE) [Concomitant]
  5. ROCURONIUM BROMIDE [Suspect]
     Indication: NEUROMUSCULAR BLOCKING THERAPY
     Dosage: 50 MG;INBO
     Route: 040
     Dates: start: 20110413, end: 20110413

REACTIONS (5)
  - COUGH [None]
  - ANAPHYLACTIC SHOCK [None]
  - ERYTHEMA [None]
  - TACHYCARDIA [None]
  - ARTERIOSPASM CORONARY [None]
